FAERS Safety Report 21562944 (Version 1)
Quarter: 2022Q4

REPORT INFORMATION
  Report Type: Spontaneous
  Country: US (occurrence: None)
  Receive Date: 20221107
  Receipt Date: 20221107
  Transmission Date: 20230112
  Serious: No
  Sender: FDA-Public Use
  Company Number: None

PATIENT
  Age: 32 Year
  Sex: Female
  Weight: 30.39 kg

DRUGS (29)
  1. TAFINLAR [Suspect]
     Active Substance: DABRAFENIB MESYLATE
     Indication: Histiocytosis
     Dosage: FREQUENCY : TWICE A DAY;?
     Route: 048
  2. ACETAMINOPHEN [Concomitant]
     Active Substance: ACETAMINOPHEN
  3. ALBUTEROL [Concomitant]
     Active Substance: ALBUTEROL
  4. AMLODIPINE [Concomitant]
     Active Substance: AMLODIPINE BESYLATE
  5. CARVEDILOL [Concomitant]
     Active Substance: CARVEDILOL
  6. CERTAVITE/ANTIOXIDANTS [Concomitant]
  7. CYANOCOBALAMIN [Concomitant]
     Active Substance: CYANOCOBALAMIN
  8. DICYCLOMINE [Concomitant]
     Active Substance: DICYCLOMINE HYDROCHLORIDE
  9. DOXYCYCLINE [Concomitant]
     Active Substance: DOXYCYCLINE
  10. ESCITALOPRAM [Concomitant]
     Active Substance: ESCITALOPRAM OXALATE
  11. FLUTICASONE [Concomitant]
     Active Substance: FLUTICASONE
  12. GABAPENTIN [Concomitant]
     Active Substance: GABAPENTIN
  13. GUAIFENESIN [Concomitant]
     Active Substance: GUAIFENESIN
  14. HYDRALAZINE [Concomitant]
     Active Substance: HYDRALAZINE HYDROCHLORIDE
  15. KETOCONAZOLE [Concomitant]
     Active Substance: KETOCONAZOLE
  16. LEVOTHYROXINE [Concomitant]
     Active Substance: LEVOTHYROXINE
  17. LOPERAMIDE [Concomitant]
     Active Substance: LOPERAMIDE
  18. LORATADINE [Concomitant]
     Active Substance: LORATADINE
  19. MECLIZINE [Concomitant]
     Active Substance: MECLIZINE HYDROCHLORIDE
  20. MOMETASONE [Concomitant]
     Active Substance: MOMETASONE
  21. NYSTATIN [Concomitant]
     Active Substance: NYSTATIN
  22. OMEPRAZOLE [Concomitant]
     Active Substance: OMEPRAZOLE
  23. ONDANSETRON [Concomitant]
     Active Substance: ONDANSETRON
  24. OXYCODONE [Concomitant]
     Active Substance: OXYCODONE
  25. POTASSIUM CHLORIDE [Concomitant]
     Active Substance: POTASSIUM CHLORIDE
  26. PROVERA [Concomitant]
     Active Substance: MEDROXYPROGESTERONE ACETATE
  27. SCOPOLAMINE [Concomitant]
     Active Substance: SCOPOLAMINE
  28. TIROSINT [Concomitant]
     Active Substance: LEVOTHYROXINE SODIUM
  29. TRANEXEMIC ACID [Concomitant]

REACTIONS (2)
  - Hepatic enzyme increased [None]
  - Therapy interrupted [None]
